FAERS Safety Report 9720072 (Version 1)
Quarter: 2013Q4

REPORT INFORMATION
  Report Type: Spontaneous
  Country: CA (occurrence: CA)
  Receive Date: 20131128
  Receipt Date: 20131128
  Transmission Date: 20140711
  Serious: Yes (Other)
  Sender: FDA-Public Use
  Company Number: CA-AMGEN-CANSP2013083941

PATIENT
  Age: 66 Year
  Sex: Female

DRUGS (12)
  1. ENBREL [Suspect]
     Indication: RHEUMATOID ARTHRITIS
     Dosage: 50 MG/ML, UNK
     Route: 065
     Dates: start: 20130716
  2. CLONIDINE [Concomitant]
     Dosage: 0.1 MG, TID
  3. NIFEDIPINE [Concomitant]
     Dosage: 30 MG, QD
  4. OXAZEPAM [Concomitant]
     Dosage: 50 MG, QHS
  5. PAROXETINE [Concomitant]
     Dosage: 20 MG, UNK (1 TABLET)
  6. METHOTREXATE [Concomitant]
     Dosage: 5 MG, QWK (2.5 MG/2 TABLETS EVERY MONDAY)
  7. ISONIAZID [Concomitant]
     Dosage: 300 MG, QD
  8. PYRIDOXINE [Concomitant]
     Dosage: 25 MG, QD (50 MG 0.5 TABLET ONCE DAILY)
  9. ATENOLOL [Concomitant]
     Dosage: 50 MG, QD
  10. LISINOPRIL [Concomitant]
     Dosage: 20 MG, QD
  11. FOLIC ACID [Concomitant]
     Dosage: 5 MG, QWK
  12. METFORMIN [Concomitant]
     Dosage: 500 MG, BID

REACTIONS (1)
  - Oesophageal carcinoma [Not Recovered/Not Resolved]
